FAERS Safety Report 5113299-3 (Version None)
Quarter: 2006Q3

REPORT INFORMATION
  Report Type: 
  Country: None (occurrence: None)
  Receive Date: 20060920
  Receipt Date: 20060908
  Transmission Date: 20061208
  Serious: Yes (Other)
  Sender: FDA-Public Use
  Company Number: US200603004266

PATIENT
  Age: 64 Year
  Sex: Female
  Weight: 81.6 kg

DRUGS (1)
  1. ZYPREXA [Suspect]

REACTIONS (11)
  - ACETONAEMIA [None]
  - ARTHRITIS [None]
  - BLOOD CHOLESTEROL INCREASED [None]
  - BLOOD TRIGLYCERIDES INCREASED [None]
  - CORONARY ARTERY OCCLUSION [None]
  - DIABETES MELLITUS [None]
  - DIABETIC KETOACIDOSIS [None]
  - HYPERTENSION [None]
  - KETONURIA [None]
  - METABOLIC ACIDOSIS [None]
  - OBESITY [None]
